FAERS Safety Report 23519616 (Version 5)
Quarter: 2025Q2

REPORT INFORMATION
  Report Type: Spontaneous
  Country: US (occurrence: US)
  Receive Date: 20240213
  Receipt Date: 20250522
  Transmission Date: 20250716
  Serious: No
  Sender: SANOFI AVENTIS
  Company Number: US-SA-SAC20240207001115

PATIENT
  Age: 41 Year
  Sex: Female

DRUGS (10)
  1. REZUROCK [Suspect]
     Active Substance: BELUMOSUDIL
     Indication: Chronic graft versus host disease
     Dosage: 200 MG, BID
     Route: 048
     Dates: start: 20230520, end: 20231020
  2. POSACONAZOLE [Concomitant]
     Active Substance: POSACONAZOLE
  3. ONDANSETRON [Concomitant]
     Active Substance: ONDANSETRON
  4. PROTONIX [Concomitant]
     Active Substance: PANTOPRAZOLE SODIUM
  5. VITAMIN D3 [Concomitant]
     Active Substance: CHOLECALCIFEROL
  6. ACETAMINOPHEN\HYDROCODONE [Concomitant]
     Active Substance: ACETAMINOPHEN\HYDROCODONE
  7. GABAPENTIN [Concomitant]
     Active Substance: GABAPENTIN
  8. MIRALAX [Concomitant]
     Active Substance: POLYETHYLENE GLYCOL 3350
  9. MAGNESIUM MALATE [MAGNESIUM;MALIC ACID] [Concomitant]
  10. FOLIC ACID [Concomitant]
     Active Substance: FOLIC ACID

REACTIONS (4)
  - Pain [Unknown]
  - Mental disorder [Unknown]
  - Depressed mood [Unknown]
  - Loss of personal independence in daily activities [Unknown]
